FAERS Safety Report 7498294-1 (Version None)
Quarter: 2011Q2

REPORT INFORMATION
  Report Type: 
  Country: None (occurrence: None)
  Receive Date: 20110524
  Receipt Date: 20110425
  Transmission Date: 20111010
  Serious: Yes (Hospitalization)
  Sender: FDA-Public Use
  Company Number: US-BAYER-201041685NA

PATIENT
  Age: 24 Year
  Sex: Female
  Weight: 65.76 kg

DRUGS (7)
  1. MIDODRINE HYDROCHLORIDE [Concomitant]
  2. RITALIN [Concomitant]
  3. LEVOXYL [Concomitant]
  4. DROSPIRENONE AND ETHINYL ESTRADIOL [Suspect]
     Indication: PRODUCT USED FOR UNKNOWN INDICATION
     Dosage: UNK
     Dates: start: 20080701, end: 20090101
  5. YASMIN [Suspect]
     Indication: PRODUCT USED FOR UNKNOWN INDICATION
     Dosage: UNK UNK, UNK
     Route: 048
     Dates: start: 20070201, end: 20080701
  6. ATENOLOL [Concomitant]
  7. SERTRALINE HYDROCHLORIDE [Concomitant]

REACTIONS (2)
  - CHOLECYSTITIS CHRONIC [None]
  - CHOLECYSTITIS ACUTE [None]
